FAERS Safety Report 8326816-7 (Version None)
Quarter: 2012Q2

REPORT INFORMATION
  Report Type: 
  Country: None (occurrence: None)
  Receive Date: 20120501
  Receipt Date: 20120426
  Transmission Date: 20120825
  Serious: Yes (Life-Threatening, Other)
  Sender: FDA-Public Use
  Company Number: JP-PFIZER INC-2012062475

PATIENT
  Age: 53 Year
  Sex: Male
  Weight: 78 kg

DRUGS (4)
  1. LYRICA [Suspect]
     Indication: PAIN
     Dosage: 150 MG, 1X/DAY
     Route: 048
     Dates: start: 20110630
  2. LOXONIN [Concomitant]
     Dosage: UNK
     Dates: start: 20110704
  3. OXYCONTIN [Suspect]
     Indication: PAIN
     Dosage: 10 MG, 1X/DAY
     Route: 048
     Dates: start: 20110704, end: 20110707
  4. FAMOTIDINE [Concomitant]
     Dosage: UNK
     Dates: start: 20110704

REACTIONS (1)
  - ALTERED STATE OF CONSCIOUSNESS [None]
